FAERS Safety Report 14535108 (Version 3)
Quarter: 2019Q1

REPORT INFORMATION
  Report Type: Spontaneous
  Country: BR (occurrence: BR)
  Receive Date: 20180215
  Receipt Date: 20190223
  Transmission Date: 20190417
  Serious: Yes (Life-Threatening, Hospitalization, Other)
  Sender: FDA-Public Use
  Company Number: BR-B.I. PHARMACEUTICALS,INC./RIDGEFIELD-2018-BI-002050

PATIENT
  Age: 79 Year
  Sex: Female
  Weight: 70 kg

DRUGS (2)
  1. PRADAXA [Suspect]
     Active Substance: DABIGATRAN ETEXILATE MESYLATE
     Indication: ATRIAL FIBRILLATION
     Route: 065
     Dates: end: 20180102
  2. PRADAXA [Suspect]
     Active Substance: DABIGATRAN ETEXILATE MESYLATE
     Route: 065
     Dates: start: 20180109

REACTIONS (13)
  - Intestinal haemorrhage [Recovered/Resolved]
  - Blood creatinine abnormal [Unknown]
  - Contraindicated product administered [Unknown]
  - Cholelithiasis [Unknown]
  - Hypotension [Unknown]
  - Renal impairment [Unknown]
  - Haemodynamic instability [Unknown]
  - Haemorrhoids [Unknown]
  - Metabolic acidosis [Unknown]
  - Dehydration [Unknown]
  - Blood urea abnormal [Unknown]
  - Pulmonary embolism [Unknown]
  - Haemoglobin abnormal [Unknown]

NARRATIVE: CASE EVENT DATE: 20180102
